FAERS Safety Report 8007840-0 (Version None)
Quarter: 2011Q4

REPORT INFORMATION
  Report Type: 
  Country: None (occurrence: None)
  Receive Date: 20111227
  Receipt Date: 20111219
  Transmission Date: 20120403
  Serious: Yes (Hospitalization, Other)
  Sender: FDA-Public Use
  Company Number: US-ASTRAZENECA-2011SE72544

PATIENT
  Age: 49 Year
  Sex: Female

DRUGS (4)
  1. ZANTAC [Concomitant]
  2. PEPCID [Concomitant]
  3. SYMBICORT [Suspect]
     Route: 055
  4. NEXIUM [Suspect]
     Route: 048

REACTIONS (5)
  - BACK PAIN [None]
  - ALOPECIA [None]
  - SLEEP DISORDER DUE TO A GENERAL MEDICAL CONDITION [None]
  - ROAD TRAFFIC ACCIDENT [None]
  - ABDOMINAL HERNIA [None]
